FAERS Safety Report 6408839-8 (Version None)
Quarter: 2009Q4

REPORT INFORMATION
  Report Type: 
  Country: None (occurrence: None)
  Receive Date: 20091019
  Receipt Date: 20091008
  Transmission Date: 20100525
  Serious: Yes (Other)
  Sender: FDA-Public Use
  Company Number: 2009EU003856

PATIENT
  Age: 58 Year
  Sex: Female
  Weight: 62 kg

DRUGS (11)
  1. ALEFACEPT INJECTION BLINDED(CODE NOT BROKEN) INJECTION [Suspect]
     Indication: RENAL TRANSPLANT
     Dosage: 15 MG, WEEKLY, SUBCUTANEOUS
     Route: 058
     Dates: start: 20080901, end: 20081124
  2. TACROLIMUS [Suspect]
     Indication: RENAL TRANSPLANT
     Dosage: 6 MG, ORAL
     Route: 048
     Dates: start: 20080901
  3. MYCOPHENOLATE MOFETIL [Suspect]
     Indication: RENAL TRANSPLANT
     Dosage: UID/QD, ORAL
     Route: 048
     Dates: start: 20080901
  4. BISOPROLOL (BISOPROLOL HEMIFUMARATE) [Concomitant]
  5. BROMAZEPAM (BROMAZEPAM) [Concomitant]
  6. DISULFIRAM [Concomitant]
  7. ALLOPURINOL [Concomitant]
  8. CHININI SULFAS (QUININE SULFATE) [Concomitant]
  9. AMLODIPINE [Concomitant]
  10. SULFAMETHOXAZOL (SULFAMETHOXAZOLE SODIUM) [Concomitant]
  11. PIPERACILLIN [Concomitant]

REACTIONS (4)
  - BLOOD CREATININE INCREASED [None]
  - C-REACTIVE PROTEIN INCREASED [None]
  - CHRONIC ALLOGRAFT NEPHROPATHY [None]
  - DRUG TOXICITY [None]
